FAERS Safety Report 9291959 (Version 1)
Quarter: 2012Q4

REPORT INFORMATION
  Report Type: Spontaneous
  Country: US (occurrence: None)
  Receive Date: 20121026
  Receipt Date: 20121026
  Transmission Date: 20130627
  Serious: Yes (Other)
  Sender: FDA-Public Use
  Company Number: ACO_26425_2011

PATIENT
  Age: 85 Year
  Sex: Female

DRUGS (11)
  1. AMPYRA (DALFAMPRIDINE) TABLET, 10MG [Suspect]
     Indication: GAIT DISTURBANCE
     Route: 048
     Dates: start: 20100112
  2. AMPYRA (DALFAMPRIDINE) TABLET, 10MG [Suspect]
     Indication: GAIT DISTURBANCE
     Route: 048
     Dates: start: 20110608
  3. AMPYRA (DALFAMPRIDINE) TABLET, 10MG [Suspect]
     Indication: GAIT DISTURBANCE
     Route: 048
  4. AMPYRA (DALFAMPRIDINE) TABLET, 10MG [Suspect]
     Indication: GAIT DISTURBANCE
     Route: 048
     Dates: end: 20120926
  5. AMPYRA (DALFAMPRIDINE) TABLET, 10MG [Suspect]
     Indication: GAIT DISTURBANCE
     Route: 048
     Dates: start: 2012
  6. SYNTHROID (LEVOTHYROXINE SODIUM) [Concomitant]
  7. BACLOFEN (BACLOFEN) [Concomitant]
  8. ASA (ACETYLSALICYLIC ACID) [Concomitant]
  9. LASIX (FUROSEMIDE) [Concomitant]
  10. B12 (CYANOCOBALAMIN) [Concomitant]
  11. CALTRATE [Concomitant]

REACTIONS (7)
  - Stress fracture [None]
  - Pruritus [None]
  - Burning sensation [None]
  - Muscle spasms [None]
  - Back pain [None]
  - Paraesthesia [None]
  - Inappropriate schedule of drug administration [None]
